FAERS Safety Report 23381498 (Version 1)
Quarter: 2024Q1

REPORT INFORMATION
  Report Type: Spontaneous
  Country: CN (occurrence: CN)
  Receive Date: 20240109
  Receipt Date: 20240109
  Transmission Date: 20240410
  Serious: Yes (Other)
  Sender: FDA-Public Use
  Company Number: CN-SA-SAC20240107000093

PATIENT
  Age: 92 Year
  Sex: Male

DRUGS (2)
  1. IRBESARTAN [Suspect]
     Active Substance: IRBESARTAN
     Indication: Symptomatic treatment
     Dosage: 0.15 G, QD
     Route: 048
     Dates: start: 20231025, end: 20231025
  2. IRBESARTAN [Suspect]
     Active Substance: IRBESARTAN
     Indication: Blood pressure increased

REACTIONS (5)
  - Cerebral hypoperfusion [Recovered/Resolved]
  - Dizziness [Recovered/Resolved]
  - Asthenia [Recovered/Resolved]
  - Hypotension [Recovered/Resolved]
  - Drug intolerance [Recovered/Resolved]

NARRATIVE: CASE EVENT DATE: 20231026
